FAERS Safety Report 12277418 (Version 1)
Quarter: 2016Q2

REPORT INFORMATION
  Report Type: Report from Study
  Country: US (occurrence: US)
  Receive Date: 20160418
  Receipt Date: 20160418
  Transmission Date: 20160815
  Serious: Yes (Other)
  Sender: FDA-Public Use
  Company Number: US-BIOGEN-2016BI00218300

PATIENT
  Age: 82 Year
  Sex: Male

DRUGS (13)
  1. BIIB037 [Suspect]
     Active Substance: ADUCANUMAB
     Indication: DEMENTIA ALZHEIMER^S TYPE
     Route: 042
     Dates: start: 20130228, end: 20131015
  2. CALTRATE 600 WITH VITAMIN D [Concomitant]
     Indication: ROUTINE HEALTH MAINTENANCE
     Route: 048
     Dates: start: 1995
  3. FIBERCON [Concomitant]
     Active Substance: CALCIUM POLYCARBOPHIL
     Indication: ROUTINE HEALTH MAINTENANCE
     Route: 048
     Dates: start: 2002
  4. BAYER LOW DOSE [Concomitant]
     Active Substance: ASPIRIN
     Indication: ROUTINE HEALTH MAINTENANCE
     Route: 048
     Dates: start: 1995
  5. FLUTICASONE PROPIONATE. [Concomitant]
     Active Substance: FLUTICASONE PROPIONATE
     Indication: PARANASAL SINUS DISCOMFORT
     Route: 045
     Dates: start: 2004
  6. MECLIZINE [Concomitant]
     Active Substance: MECLIZINE HYDROCHLORIDE
     Indication: VERTIGO
     Route: 048
     Dates: start: 20130909
  7. DONEPEZIL HCL [Concomitant]
     Active Substance: DONEPEZIL HYDROCHLORIDE
     Indication: DEMENTIA ALZHEIMER^S TYPE
     Route: 048
     Dates: start: 20120531, end: 20120630
  8. DONEPEZIL HCL [Concomitant]
     Active Substance: DONEPEZIL HYDROCHLORIDE
     Route: 048
     Dates: start: 20120630, end: 20120702
  9. OMEPRAZOLE. [Concomitant]
     Active Substance: OMEPRAZOLE
     Indication: DYSPEPSIA
     Route: 048
     Dates: start: 2002
  10. DONEPEZIL HCL [Concomitant]
     Active Substance: DONEPEZIL HYDROCHLORIDE
     Route: 048
     Dates: start: 20120816
  11. CENTRUM SILVER [Concomitant]
     Active Substance: MINERALS\VITAMINS
     Indication: ROUTINE HEALTH MAINTENANCE
     Route: 048
     Dates: start: 1995
  12. DONEPEZIL HCL [Concomitant]
     Active Substance: DONEPEZIL HYDROCHLORIDE
     Route: 048
     Dates: start: 20120702, end: 20120816
  13. FISH OIL [Concomitant]
     Active Substance: FISH OIL
     Indication: ROUTINE HEALTH MAINTENANCE
     Route: 048
     Dates: start: 2002

REACTIONS (1)
  - Transitional cell carcinoma [Not Recovered/Not Resolved]

NARRATIVE: CASE EVENT DATE: 20131030
